FAERS Safety Report 8422459-5 (Version None)
Quarter: 2012Q2

REPORT INFORMATION
  Report Type: 
  Country: None (occurrence: None)
  Receive Date: 20120608
  Receipt Date: 20120530
  Transmission Date: 20120825
  Serious: Yes (Hospitalization, Other)
  Sender: FDA-Public Use
  Company Number: PR-ABBOTT-12P-131-0935226-00

PATIENT
  Sex: Female
  Weight: 72.186 kg

DRUGS (4)
  1. ULTRACET [Concomitant]
     Indication: PRODUCT USED FOR UNKNOWN INDICATION
     Route: 048
     Dates: start: 20090101
  2. LYRICA [Concomitant]
     Indication: PRODUCT USED FOR UNKNOWN INDICATION
     Route: 048
     Dates: start: 20110101
  3. OXYGEN [Concomitant]
     Indication: PRODUCT USED FOR UNKNOWN INDICATION
     Dosage: 24 HOURS DAILY
     Route: 045
     Dates: start: 20110101
  4. HUMIRA [Suspect]
     Indication: PRODUCT USED FOR UNKNOWN INDICATION
     Route: 058
     Dates: start: 20100101, end: 20120430

REACTIONS (13)
  - MUSCULAR WEAKNESS [None]
  - EYE INFECTION BACTERIAL [None]
  - ASTHMA [None]
  - CONSTIPATION [None]
  - WEIGHT DECREASED [None]
  - BLOOD PRESSURE INCREASED [None]
  - PYREXIA [None]
  - HAEMOGLOBIN DECREASED [None]
  - EYELID PTOSIS [None]
  - ABASIA [None]
  - VOMITING [None]
  - OCULAR HYPERAEMIA [None]
  - DECREASED APPETITE [None]
